FAERS Safety Report 16562447 (Version 1)
Quarter: 2019Q3

REPORT INFORMATION
  Report Type: Spontaneous
  Country: US (occurrence: US)
  Receive Date: 20190711
  Receipt Date: 20190711
  Transmission Date: 20191004
  Serious: Yes (Hospitalization)
  Sender: FDA-Public Use
  Company Number: US-TEVA-2019-US-1074063

PATIENT
  Age: 49 Year
  Sex: Male

DRUGS (3)
  1. TESTOSTERONE. [Suspect]
     Active Substance: TESTOSTERONE
     Route: 065
  2. TRENBOLONE ACETATE [Suspect]
     Active Substance: TRENBOLONE ACETATE
     Route: 065
  3. OXANDROLONE. [Suspect]
     Active Substance: OXANDROLONE
     Route: 065

REACTIONS (11)
  - Acute kidney injury [Unknown]
  - High density lipoprotein decreased [Unknown]
  - Gerstmann^s syndrome [Not Recovered/Not Resolved]
  - Cerebral haematoma [Recovering/Resolving]
  - Polycythaemia [Recovering/Resolving]
  - Low density lipoprotein increased [Unknown]
  - Ischaemic stroke [Recovering/Resolving]
  - Hypertensive urgency [Unknown]
  - Cerebral haemorrhage [Recovering/Resolving]
  - Haemorrhagic transformation stroke [Recovering/Resolving]
  - Subarachnoid haemorrhage [Recovering/Resolving]
